FAERS Safety Report 10023006 (Version 1)
Quarter: 2014Q1

REPORT INFORMATION
  Report Type: Spontaneous
  Country: US (occurrence: US)
  Receive Date: 20140319
  Receipt Date: 20140319
  Transmission Date: 20141002
  Serious: No
  Sender: FDA-Public Use
  Company Number: -SAAVPROD-LEUK-1000363

PATIENT
  Age: 65 Year
  Sex: Female

DRUGS (1)
  1. SARGRAMOSTIM [Suspect]
     Indication: NEUTROPENIA
     Dosage: 500 MCG, UNK
     Route: 065
     Dates: start: 20130718

REACTIONS (1)
  - Back pain [Recovered/Resolved]
